FAERS Safety Report 10745599 (Version 1)
Quarter: 2015Q1

REPORT INFORMATION
  Report Type: Spontaneous
  Country: US (occurrence: US)
  Receive Date: 20150128
  Receipt Date: 20150128
  Transmission Date: 20150721
  Serious: No
  Sender: FDA-Public Use
  Company Number: US-ASTRAZENECA-2015SE07837

PATIENT
  Sex: Female

DRUGS (14)
  1. IMITREX [Suspect]
     Active Substance: SUMATRIPTAN\SUMATRIPTAN SUCCINATE
     Route: 065
  2. RELPAX [Suspect]
     Active Substance: ELETRIPTAN HYDROBROMIDE
     Route: 065
  3. CHANTIX [Suspect]
     Active Substance: VARENICLINE TARTRATE
     Route: 065
  4. ULTRAM [Suspect]
     Active Substance: TRAMADOL HYDROCHLORIDE
     Route: 065
  5. ABILIFY [Suspect]
     Active Substance: ARIPIPRAZOLE
     Route: 065
  6. WELLBUTRIN [Suspect]
     Active Substance: BUPROPION HYDROCHLORIDE
     Route: 065
  7. HUMIRA [Suspect]
     Active Substance: ADALIMUMAB
     Route: 065
  8. TYLENOL [Suspect]
     Active Substance: ACETAMINOPHEN
     Route: 065
  9. MAXALT [Suspect]
     Active Substance: RIZATRIPTAN BENZOATE
     Route: 065
  10. SEROQUEL [Suspect]
     Active Substance: QUETIAPINE FUMARATE
     Route: 048
  11. REMERON [Suspect]
     Active Substance: MIRTAZAPINE
     Route: 065
  12. NEXIUM [Suspect]
     Active Substance: ESOMEPRAZOLE MAGNESIUM
     Route: 048
  13. ERYTHROMYCIN. [Suspect]
     Active Substance: ERYTHROMYCIN
     Route: 065
  14. CITRACAL [Suspect]
     Active Substance: CALCIUM CITRATE
     Route: 065

REACTIONS (1)
  - Drug hypersensitivity [Unknown]
